FAERS Safety Report 15973222 (Version 1)
Quarter: 2019Q1

REPORT INFORMATION
  Report Type: Report from Study
  Country: US (occurrence: US)
  Receive Date: 20190216
  Receipt Date: 20190216
  Transmission Date: 20190418
  Serious: No
  Sender: FDA-Public Use
  Company Number: US-AMAG PHARMACEUTICALS, INC.-AMAG201805776

PATIENT
  Sex: Female

DRUGS (2)
  1. MAKENA [Suspect]
     Active Substance: HYDROXYPROGESTERONE CAPROATE
     Dosage: UNK
     Route: 030
     Dates: start: 20180709
  2. MAKENA [Suspect]
     Active Substance: HYDROXYPROGESTERONE CAPROATE
     Indication: PREMATURE DELIVERY
     Dosage: UNK
     Route: 058
     Dates: start: 2018, end: 2018

REACTIONS (4)
  - Pain [Unknown]
  - Sciatica [Unknown]
  - Feeling abnormal [Unknown]
  - Swelling [Unknown]

NARRATIVE: CASE EVENT DATE: 2018
